FAERS Safety Report 17195814 (Version 1)
Quarter: 2019Q4

REPORT INFORMATION
  Report Type: Spontaneous
  Country: IN (occurrence: IN)
  Receive Date: 20191224
  Receipt Date: 20191224
  Transmission Date: 20200122
  Serious: Yes (Death, Hospitalization)
  Sender: FDA-Public Use
  Company Number: PHHY2008IN046151

PATIENT
  Age: 14 Year
  Sex: Female

DRUGS (2)
  1. ANTACIDS [Concomitant]
     Active Substance: UNSPECIFIED INGREDIENT
     Indication: ABDOMINAL PAIN
     Dosage: UNK
     Route: 065
  2. ONDANSETRON [Suspect]
     Active Substance: ONDANSETRON
     Indication: VOMITING
     Dosage: 4 MG,
     Route: 030

REACTIONS (9)
  - Altered state of consciousness [Unknown]
  - Cold sweat [Unknown]
  - Dizziness [Unknown]
  - Vomiting [Unknown]
  - Circulatory collapse [Unknown]
  - Ventricular tachycardia [Fatal]
  - Ventricular fibrillation [Fatal]
  - Peripheral coldness [Unknown]
  - Cardiogenic shock [Unknown]
